FAERS Safety Report 13819408 (Version 1)
Quarter: 2017Q3

REPORT INFORMATION
  Report Type: Spontaneous
  Country: US (occurrence: US)
  Receive Date: 20170731
  Receipt Date: 20170731
  Transmission Date: 20171127
  Serious: Yes (Other)
  Sender: FDA-Public Use
  Company Number: US-BEH-2017082308

PATIENT
  Sex: Male
  Weight: 81.63 kg

DRUGS (15)
  1. FLOMAX [Concomitant]
     Active Substance: TAMSULOSIN HYDROCHLORIDE
  2. POTASSIUM [Concomitant]
     Active Substance: POTASSIUM
  3. TEGRETOL [Concomitant]
     Active Substance: CARBAMAZEPINE
  4. HIZENTRA [Suspect]
     Active Substance: HUMAN IMMUNOGLOBULIN G
     Indication: IMMUNODEFICIENCY COMMON VARIABLE
     Dosage: 10 G, QW
     Route: 058
     Dates: start: 20110207, end: 20170719
  5. RANITIDINE. [Concomitant]
     Active Substance: RANITIDINE
  6. PULMICORT TURBUHALER [Concomitant]
     Active Substance: BUDESONIDE
  7. PROZAC [Concomitant]
     Active Substance: FLUOXETINE HYDROCHLORIDE
  8. TYLENOL EXTRA STRENGTH [Concomitant]
     Active Substance: ACETAMINOPHEN
  9. KLONOPIN [Concomitant]
     Active Substance: CLONAZEPAM
  10. TRICOR                             /00090101/ [Concomitant]
     Active Substance: ADENOSINE
  11. MOTRIN [Concomitant]
     Active Substance: IBUPROFEN
  12. HIZENTRA [Suspect]
     Active Substance: HUMAN IMMUNOGLOBULIN G
     Dosage: UNK
     Route: 058
  13. GLUCOSAMINE CHONDROITIN            /01430901/ [Concomitant]
  14. NASONEX [Concomitant]
     Active Substance: MOMETASONE FUROATE
  15. PROAIR HFA [Concomitant]
     Active Substance: ALBUTEROL SULFATE

REACTIONS (1)
  - Thrombosis [Unknown]
